FAERS Safety Report 9192639 (Version 1)
Quarter: 2013Q1

REPORT INFORMATION
  Report Type: Report from Study
  Country: US (occurrence: US)
  Receive Date: 20130327
  Receipt Date: 20130327
  Transmission Date: 20140127
  Serious: Yes (Other)
  Sender: FDA-Public Use
  Company Number: US-JNJFOC-20130315891

PATIENT
  Sex: 0

DRUGS (3)
  1. REMICADE [Suspect]
     Indication: COLITIS
     Dosage: 3 INFUSIONS
     Route: 042
  2. REMICADE [Suspect]
     Indication: CROHN^S DISEASE
     Dosage: 3 INFUSIONS
     Route: 042
  3. PROTEIN SHAKES [Concomitant]
     Route: 065

REACTIONS (3)
  - Systemic lupus erythematosus [Recovered/Resolved]
  - Fatigue [Unknown]
  - Asthenia [Unknown]
